FAERS Safety Report 8600952-X (Version None)
Quarter: 2012Q2

REPORT INFORMATION
  Report Type: 
  Country: None (occurrence: None)
  Receive Date: 20120423
  Receipt Date: 20100112
  Transmission Date: 20120825
  Serious: Yes (Other)
  Sender: FDA-Public Use
  Company Number: PHEH2009US16776

PATIENT
  Sex: Female

DRUGS (1)
  1. FEMARA [Suspect]
     Dosage: 2.5 MG DAILY, ORAL
     Route: 048

REACTIONS (5)
  - MUSCULOSKELETAL DISCOMFORT [None]
  - BODY HEIGHT DECREASED [None]
  - HIP FRACTURE [None]
  - BACK PAIN [None]
  - MUSCULOSKELETAL PAIN [None]
